FAERS Safety Report 15597828 (Version 4)
Quarter: 2018Q4

REPORT INFORMATION
  Report Type: Spontaneous
  Country: US (occurrence: US)
  Receive Date: 20181108
  Receipt Date: 20181218
  Transmission Date: 20190205
  Serious: Yes (Other)
  Sender: FDA-Public Use
  Company Number: US-GLAXOSMITHKLINE-US2018199402

PATIENT
  Age: 47 Year
  Sex: Female

DRUGS (1)
  1. VENTOLIN HFA [Suspect]
     Active Substance: ALBUTEROL SULFATE
     Indication: BRONCHOSPASM
     Route: 055
     Dates: start: 20180827

REACTIONS (6)
  - Arrhythmia [Unknown]
  - Drug ineffective [Recovering/Resolving]
  - Ventricular extrasystoles [Unknown]
  - Inhalation therapy [Recovering/Resolving]
  - Tachycardia [Unknown]
  - Product complaint [Unknown]

NARRATIVE: CASE EVENT DATE: 20180827
